FAERS Safety Report 18187558 (Version 1)
Quarter: 2020Q3

REPORT INFORMATION
  Report Type: Other
  Country: CA (occurrence: CA)
  Receive Date: 20200824
  Receipt Date: 20200824
  Transmission Date: 20201103
  Serious: Yes (Hospitalization, Other)
  Sender: FDA-Public Use
  Company Number: CA-ASTELLAS-2020US027584

PATIENT
  Age: 70 Year
  Sex: Male

DRUGS (5)
  1. TACROLIMUS. [Suspect]
     Active Substance: TACROLIMUS
     Indication: RENAL TRANSPLANT
     Dosage: UNK UNK, UNKNOWN FREQ.
     Route: 065
  2. TACROLIMUS. [Suspect]
     Active Substance: TACROLIMUS
     Indication: RENAL TRANSPLANT
     Dosage: UNK UNK, UNKNOWN FREQ.
     Route: 065
  3. MICAFUNGIN. [Suspect]
     Active Substance: MICAFUNGIN SODIUM
     Indication: ORAL CANDIDIASIS
     Dosage: UNK UNK, UNKNOWN FREQ.
     Route: 065
  4. MYCOPHENOLATE MOFETIL. [Suspect]
     Active Substance: MYCOPHENOLATE MOFETIL
     Indication: RENAL TRANSPLANT
     Dosage: UNK UNK, UNKNOWN FREQ.
     Route: 065
  5. PREDNISONE. [Concomitant]
     Active Substance: PREDNISONE
     Indication: RENAL TRANSPLANT
     Dosage: UNK UNK, UNKNOWN FREQ.
     Route: 065

REACTIONS (25)
  - Pneumonia [Recovered/Resolved]
  - Reactive gastropathy [Recovered/Resolved]
  - Small intestinal haemorrhage [Recovered/Resolved]
  - Dyspnoea [Recovered/Resolved]
  - Delayed graft function [Recovered/Resolved]
  - Enterococcal infection [Recovered/Resolved]
  - Renal tubular necrosis [Recovered/Resolved]
  - Hypoxia [Recovered/Resolved]
  - Blood pressure systolic decreased [Recovered/Resolved]
  - Oesophageal stenosis [Recovered/Resolved]
  - Acute respiratory failure [Recovered/Resolved]
  - Adult failure to thrive [Recovered/Resolved]
  - Hypophagia [Recovered/Resolved]
  - Respiratory failure [Recovered/Resolved]
  - Gastrointestinal haemorrhage [Recovered/Resolved]
  - Haematocrit decreased [Recovered/Resolved]
  - Unresponsive to stimuli [Recovered/Resolved]
  - Necrotising oesophagitis [Recovered/Resolved]
  - Aspergillus infection [Recovered/Resolved]
  - Diarrhoea [Recovered/Resolved]
  - Malaise [Recovered/Resolved]
  - Oral candidiasis [Recovered/Resolved]
  - Productive cough [Recovered/Resolved]
  - Staphylococcal infection [Recovered/Resolved]
  - Urinary tract infection bacterial [Recovered/Resolved]
